FAERS Safety Report 13736313 (Version 1)
Quarter: 2017Q3

REPORT INFORMATION
  Report Type: Spontaneous
  Country: ES (occurrence: ES)
  Receive Date: 20170710
  Receipt Date: 20170710
  Transmission Date: 20171127
  Serious: Yes (Death, Other)
  Sender: FDA-Public Use
  Company Number: ES-AUROBINDO-AUR-APL-2017-37033

PATIENT
  Age: 61 Year
  Sex: Male

DRUGS (4)
  1. RIBAVIRIN. [Suspect]
     Active Substance: RIBAVIRIN
     Indication: ANTIVIRAL TREATMENT
     Route: 065
  2. SOFOSBUVIR [Suspect]
     Active Substance: SOFOSBUVIR
     Indication: ANTIVIRAL TREATMENT
     Route: 065
  3. DACLATASVIR. [Suspect]
     Active Substance: DACLATASVIR
     Indication: ANTIVIRAL TREATMENT
     Route: 065
  4. SOFOSBUVIR [Suspect]
     Active Substance: SOFOSBUVIR
     Dosage: 400 MG, DAILY
     Route: 065

REACTIONS (1)
  - Pneumonia [Fatal]
